FAERS Safety Report 16214035 (Version 1)
Quarter: 2019Q2

REPORT INFORMATION
  Report Type: Spontaneous
  Country: US (occurrence: US)
  Receive Date: 20190418
  Receipt Date: 20190418
  Transmission Date: 20190711
  Serious: Yes (Hospitalization, Other)
  Sender: FDA-Public Use
  Company Number: US-GLAXOSMITHKLINE-US2019068253

PATIENT
  Sex: Male

DRUGS (1)
  1. LAMICTAL [Suspect]
     Active Substance: LAMOTRIGINE
     Indication: PRODUCT USED FOR UNKNOWN INDICATION
     Dosage: 50 MG, QD
     Route: 048

REACTIONS (8)
  - Dysphonia [Unknown]
  - Haemorrhage [Unknown]
  - Rhabdomyolysis [Unknown]
  - Hospitalisation [Unknown]
  - Muscle discomfort [Unknown]
  - Rash [Unknown]
  - Thirst [Unknown]
  - Cough [Unknown]

NARRATIVE: CASE EVENT DATE: 20190414
